FAERS Safety Report 24245731 (Version 1)
Quarter: 2024Q3

REPORT INFORMATION
  Report Type: Spontaneous
  Country: US (occurrence: US)
  Receive Date: 20240824
  Receipt Date: 20240824
  Transmission Date: 20241017
  Serious: No
  Sender: GLAXOSMITHKLINE
  Company Number: US-GSKCCFUS-Case-02078930_AE-114947

PATIENT
  Age: 53 Year
  Sex: Female

DRUGS (1)
  1. KRINTAFEL [Suspect]
     Active Substance: TAFENOQUINE SUCCINATE
     Indication: Product used for unknown indication
     Dosage: `300 MG, QD

REACTIONS (1)
  - Product prescribing error [Unknown]
